FAERS Safety Report 17142295 (Version 1)
Quarter: 2019Q4

REPORT INFORMATION
  Report Type: Spontaneous
  Country: US (occurrence: US)
  Receive Date: 20191211
  Receipt Date: 20191211
  Transmission Date: 20200122
  Serious: No
  Sender: FDA-Public Use
  Company Number: US-JUBILANT CADISTA PHARMACEUTICALS-2019JUB00201

PATIENT
  Age: 62 Year
  Sex: Female
  Weight: 70.75 kg

DRUGS (10)
  1. TRIAMTERENE AND HYDROCHLOROTHIAZIDE [Concomitant]
     Active Substance: HYDROCHLOROTHIAZIDE\TRIAMTERENE
     Dosage: 0.5 TABLETS, 1X/DAY
  2. METHYLPREDNISOLONE. [Suspect]
     Active Substance: METHYLPREDNISOLONE
     Dosage: 20 MG, 1X/DAY
     Route: 048
     Dates: start: 20190522, end: 20190522
  3. METHYLPREDNISOLONE. [Suspect]
     Active Substance: METHYLPREDNISOLONE
     Dosage: 8 MG, 1X/DAY
     Route: 048
     Dates: start: 20190525, end: 20190525
  4. METHYLPREDNISOLONE. [Suspect]
     Active Substance: METHYLPREDNISOLONE
     Dosage: 4 MG, 1X/DAY
     Route: 048
     Dates: start: 20190526, end: 20190526
  5. PROGESTRONE [Concomitant]
     Dosage: UNK, 1X/DAY AT NIGHT
  6. VITAMIN B [Concomitant]
     Active Substance: VITAMIN B
  7. METHYLPREDNISOLONE. [Suspect]
     Active Substance: METHYLPREDNISOLONE
     Indication: SPINAL STENOSIS
     Dosage: 24 MG, 1X/DAY
     Route: 048
     Dates: start: 20190521, end: 20190521
  8. METHYLPREDNISOLONE. [Suspect]
     Active Substance: METHYLPREDNISOLONE
     Dosage: 12 MG, 1X/DAY
     Route: 048
     Dates: start: 20190524, end: 20190524
  9. METHYLPREDNISOLONE. [Suspect]
     Active Substance: METHYLPREDNISOLONE
     Dosage: 16 MG, 1X/DAY
     Route: 048
     Dates: start: 20190523, end: 20190523
  10. VITAMIN D [Concomitant]
     Active Substance: VITAMIN D NOS

REACTIONS (3)
  - Erythema [Recovered/Resolved]
  - Feeling hot [Recovered/Resolved]
  - Flushing [Recovered/Resolved]

NARRATIVE: CASE EVENT DATE: 20190522
